FAERS Safety Report 5934379-6 (Version None)
Quarter: 2008Q4

REPORT INFORMATION
  Report Type: 
  Country: None (occurrence: None)
  Receive Date: 20081029
  Receipt Date: 20081023
  Transmission Date: 20090506
  Serious: Yes (Other)
  Sender: FDA-Public Use
  Company Number: PHEH2008US09518

PATIENT

DRUGS (2)
  1. TEKTURNA [Suspect]
  2. DIOVAN [Concomitant]

REACTIONS (1)
  - RENAL FAILURE ACUTE [None]
